FAERS Safety Report 9032121 (Version 1)
Quarter: 2013Q1

REPORT INFORMATION
  Report Type: Report from Study
  Country: CA (occurrence: CA)
  Receive Date: 20130122
  Receipt Date: 20130122
  Transmission Date: 20140127
  Serious: Yes (Other)
  Sender: FDA-Public Use
  Company Number: CA-JNJFOC-20130107767

PATIENT
  Age: 20 Year
  Sex: Male
  Weight: 78 kg

DRUGS (2)
  1. REMICADE [Suspect]
     Indication: CROHN^S DISEASE
     Dosage: 6TH INFUSION
     Route: 042
     Dates: start: 20130110
  2. REMICADE [Suspect]
     Indication: CROHN^S DISEASE
     Route: 042
     Dates: start: 20120704

REACTIONS (5)
  - Infusion related reaction [Unknown]
  - Chest discomfort [Unknown]
  - Erythema [Unknown]
  - Hyperhidrosis [Unknown]
  - Oxygen saturation decreased [Unknown]
